FAERS Safety Report 15337769 (Version 1)
Quarter: 2018Q3

REPORT INFORMATION
  Report Type: Spontaneous
  Country: US (occurrence: US)
  Receive Date: 20180827
  Receipt Date: 20180827
  Transmission Date: 20181010
  Serious: Yes (Hospitalization, Disabling, Other)
  Sender: FDA-Public Use
  Company Number: None

PATIENT
  Sex: Female
  Weight: 64.35 kg

DRUGS (2)
  1. HYDROCHLOROTHIAZIDE. [Suspect]
     Active Substance: HYDROCHLOROTHIAZIDE
     Indication: BLOOD PRESSURE MEASUREMENT
     Dosage: ?          QUANTITY:12 TABLET(S);?
     Route: 048
  2. ACEMINATOFEN [Concomitant]

REACTIONS (8)
  - Vomiting [None]
  - Cardiac disorder [None]
  - Hypertension [None]
  - Migraine [None]
  - Unevaluable event [None]
  - Blood sodium decreased [None]
  - Blood potassium decreased [None]
  - Nephropathy [None]
